FAERS Safety Report 13190398 (Version 1)
Quarter: 2017Q1

REPORT INFORMATION
  Report Type: Spontaneous
  Country: HK (occurrence: HK)
  Receive Date: 20170206
  Receipt Date: 20170206
  Transmission Date: 20170428
  Serious: Yes (Hospitalization)
  Sender: FDA-Public Use
  Company Number: HK-009507513-1702HKG001612

PATIENT
  Age: 8 Year
  Sex: Female

DRUGS (1)
  1. SINGULAIR [Suspect]
     Active Substance: MONTELUKAST SODIUM
     Indication: ASTHMA
     Dosage: UNK
     Route: 048
     Dates: start: 2011

REACTIONS (2)
  - Pyrexia [Unknown]
  - Asthma [Unknown]
